FAERS Safety Report 15736459 (Version 1)
Quarter: 2018Q4

REPORT INFORMATION
  Report Type: Spontaneous
  Country: US (occurrence: US)
  Receive Date: 20181218
  Receipt Date: 20181218
  Transmission Date: 20190205
  Serious: Yes (Death)
  Sender: FDA-Public Use
  Company Number: US-PFIZER INC-2018518283

PATIENT
  Sex: Female

DRUGS (1)
  1. VIAGRA [Suspect]
     Active Substance: SILDENAFIL CITRATE
     Indication: DEMENTIA ALZHEIMER^S TYPE
     Dosage: HALF A PILL EVERY OTHER DAY

REACTIONS (3)
  - Product use issue [Unknown]
  - Death [Fatal]
  - Drug ineffective for unapproved indication [Unknown]
